FAERS Safety Report 7927029-0 (Version None)
Quarter: 2011Q4

REPORT INFORMATION
  Report Type: 
  Country: None (occurrence: None)
  Receive Date: 20111118
  Receipt Date: 20111109
  Transmission Date: 20120403
  Serious: Yes (Hospitalization)
  Sender: FDA-Public Use
  Company Number: US-US-EMD SERONO, INC.-7085893

PATIENT
  Sex: Female

DRUGS (1)
  1. REBIF [Suspect]
     Indication: MULTIPLE SCLEROSIS
     Route: 058
     Dates: start: 20100812

REACTIONS (4)
  - POST PROCEDURAL HAEMATOMA [None]
  - MULTIPLE SCLEROSIS [None]
  - CARTILAGE ATROPHY [None]
  - FATIGUE [None]
